FAERS Safety Report 8098743 (Version 5)
Quarter: 2020Q3

REPORT INFORMATION
  Report Type: Spontaneous
  Country: US (occurrence: US)
  Receive Date: 20110819
  Receipt Date: 20200902
  Transmission Date: 20201103
  Serious: Yes (Other)
  Sender: FDA-Public Use
  Company Number: US-PURDUE-USA-2011-0073474

PATIENT
  Sex: Male

DRUGS (4)
  1. ROXICET [Concomitant]
     Active Substance: ACETAMINOPHEN\OXYCODONE HYDROCHLORIDE
     Indication: INSOMNIA
  2. ROXICET [Concomitant]
     Active Substance: ACETAMINOPHEN\OXYCODONE HYDROCHLORIDE
     Indication: BREAKTHROUGH PAIN
     Dosage: 5 MG, PRN
     Route: 065
  3. OXYCONTIN [Suspect]
     Active Substance: OXYCODONE HYDROCHLORIDE
     Indication: ROTATOR CUFF SYNDROME
     Dosage: UNK
     Route: 048
     Dates: start: 1999
  4. OXYCONTIN [Suspect]
     Active Substance: OXYCODONE HYDROCHLORIDE
     Indication: PAIN
     Dosage: 90MG IN THE MORNING AND 80MG AT NIGHT
     Route: 048
     Dates: start: 20101101, end: 20110805

REACTIONS (15)
  - Insomnia [Unknown]
  - Rotator cuff repair [Recovered/Resolved]
  - Drug withdrawal syndrome [Unknown]
  - Diarrhoea [Unknown]
  - Unevaluable event [Unknown]
  - Product quality issue [Unknown]
  - Decreased appetite [Unknown]
  - Inadequate analgesia [Unknown]
  - Drug dependence [Unknown]
  - Suicidal ideation [Unknown]
  - Impaired work ability [Unknown]
  - Memory impairment [Unknown]
  - Asthenia [Unknown]
  - Cognitive disorder [Unknown]
  - Negative thoughts [Unknown]

NARRATIVE: CASE EVENT DATE: 20101130
